FAERS Safety Report 11106449 (Version 8)
Quarter: 2015Q4

REPORT INFORMATION
  Report Type: Report from Study
  Country: US (occurrence: US)
  Receive Date: 20150512
  Receipt Date: 20151112
  Transmission Date: 20160304
  Serious: Yes (Hospitalization, Other)
  Sender: FDA-Public Use
  Company Number: US-JNJFOC-20150218404

PATIENT
  Age: 62 Year
  Sex: Male
  Weight: 84 kg

DRUGS (10)
  1. NUTRITIONAL SUPPLEMENT [Concomitant]
     Active Substance: DIETARY SUPPLEMENT
     Indication: NUTRITIONAL SUPPLEMENTATION
     Route: 048
     Dates: start: 2013
  2. XIFAXAN [Concomitant]
     Active Substance: RIFAXIMIN
     Indication: HEPATIC ENCEPHALOPATHY
     Route: 048
     Dates: start: 2013
  3. SOVALDI [Suspect]
     Active Substance: SOFOSBUVIR
     Indication: HEPATITIS C
     Dosage: 400 (UNITS UNSPECIFIED)
     Route: 065
     Dates: start: 20141017, end: 20150107
  4. LASIX [Concomitant]
     Active Substance: FUROSEMIDE
     Indication: HEREDITARY HAEMORRHAGIC TELANGIECTASIA
     Dosage: IN THE EVENING (PM)
     Route: 048
     Dates: start: 2013, end: 20150201
  5. LASIX [Concomitant]
     Active Substance: FUROSEMIDE
     Indication: HEREDITARY HAEMORRHAGIC TELANGIECTASIA
     Dosage: IN THE MORNING (AM)
     Route: 048
     Dates: start: 2013, end: 20150201
  6. MUPIROCIN. [Concomitant]
     Active Substance: MUPIROCIN
     Indication: EPISTAXIS
     Dosage: DOSE: 2%
     Route: 048
     Dates: start: 20150208, end: 20150226
  7. OLYSIO [Suspect]
     Active Substance: SIMEPREVIR
     Indication: HEPATITIS C
     Dosage: 150 (UNITS UNSPECIFIED)
     Route: 048
     Dates: start: 20141017, end: 20150107
  8. CENTRUM SILVER [Concomitant]
     Active Substance: MINERALS\VITAMINS
     Route: 048
     Dates: start: 2013
  9. SPIRONOLACTONE. [Concomitant]
     Active Substance: SPIRONOLACTONE
     Indication: HEREDITARY HAEMORRHAGIC TELANGIECTASIA
     Route: 048
     Dates: start: 2013, end: 20150201
  10. PROTONIX [Concomitant]
     Active Substance: PANTOPRAZOLE SODIUM
     Indication: GASTROINTESTINAL DISORDER THERAPY
     Route: 048
     Dates: start: 2013

REACTIONS (6)
  - Hepatorenal syndrome [Unknown]
  - Epistaxis [Recovered/Resolved]
  - Acute kidney injury [Recovered/Resolved]
  - Haemorrhagic anaemia [Recovered/Resolved]
  - Headache [Recovered/Resolved]
  - Nephrolithiasis [Unknown]

NARRATIVE: CASE EVENT DATE: 20150201
